FAERS Safety Report 8530477 (Version 2)
Quarter: 2013Q4

REPORT INFORMATION
  Report Type: Spontaneous
  Country: CA (occurrence: CA)
  Receive Date: 20120425
  Receipt Date: 20131223
  Transmission Date: 20140711
  Serious: Yes (Other)
  Sender: FDA-Public Use
  Company Number: CA-ELI_LILLY_AND_COMPANY-CA201204003523

PATIENT
  Age: 39 Year
  Sex: Female
  Weight: 58.05 kg

DRUGS (7)
  1. STRATTERA [Suspect]
     Indication: ATTENTION DEFICIT/HYPERACTIVITY DISORDER
     Dosage: 10 MG, BID
     Route: 048
     Dates: start: 20111023, end: 20111105
  2. STRATTERA [Suspect]
     Dosage: 18 MG, EACH MORNING
     Route: 048
     Dates: start: 20111106, end: 20111128
  3. STRATTERA [Suspect]
     Dosage: 10 MG, EACH EVENING
     Route: 048
     Dates: start: 20111106, end: 20111128
  4. PAXIL [Suspect]
     Indication: GENERALISED ANXIETY DISORDER
     Dosage: 30 MG, UNK
     Route: 065
     Dates: start: 201104
  5. PAXIL [Suspect]
     Dosage: 45 MG, UNK
     Route: 065
     Dates: start: 20111127
  6. NASONEX [Concomitant]
  7. TRIQUILAR 28 [Concomitant]

REACTIONS (12)
  - Tension [Recovered/Resolved]
  - Anxiety [Recovered/Resolved]
  - Depression [Recovered/Resolved]
  - Dizziness [Recovered/Resolved]
  - Dry mouth [Recovered/Resolved]
  - Hot flush [Recovered/Resolved]
  - Nausea [Recovered/Resolved]
  - Palpitations [Recovered/Resolved]
  - Tachycardia [Recovered/Resolved]
  - Emotional disorder [Recovered/Resolved]
  - Decreased interest [Recovered/Resolved]
  - Weight decreased [Recovered/Resolved]
